FAERS Safety Report 7065932-7 (Version None)
Quarter: 2010Q4

REPORT INFORMATION
  Report Type: 
  Country: None (occurrence: None)
  Receive Date: 20101027
  Receipt Date: 20101013
  Transmission Date: 20110411
  Serious: Yes (Other)
  Sender: FDA-Public Use
  Company Number: NL-AMGEN-QUU443095

PATIENT

DRUGS (7)
  1. ETANERCEPT [Suspect]
     Indication: PSORIASIS
     Dosage: 50 MG, QWK
     Route: 058
     Dates: start: 20091105, end: 20100513
  2. ETANERCEPT [Suspect]
     Dosage: UNK
     Dates: start: 20061005, end: 20061110
  3. ETANERCEPT [Suspect]
     Dosage: UNK
     Dates: start: 20081125
  4. ENBREL [Suspect]
     Indication: PSORIASIS
     Dosage: DIFFERENT DOSES
     Route: 058
     Dates: start: 20061005
  5. ENBREL [Suspect]
     Dosage: 50 MG, 2 TIMES/WK
     Route: 058
     Dates: start: 20081125
  6. IBUPROFEN [Concomitant]
     Indication: PYREXIA
     Dates: start: 20100515
  7. IBUPROFEN [Concomitant]
     Indication: ARTHRALGIA

REACTIONS (5)
  - CHILLS [None]
  - DIZZINESS [None]
  - HYPERHIDROSIS [None]
  - NAUSEA [None]
  - SARCOIDOSIS [None]
